FAERS Safety Report 21090842 (Version 1)
Quarter: 2022Q3

REPORT INFORMATION
  Report Type: Other
  Country: None (occurrence: US)
  Receive Date: 20220716
  Receipt Date: 20220716
  Transmission Date: 20221027
  Serious: Yes (Other)
  Sender: FDA-Public Use
  Company Number: US-Tenshi Kaizen Private Limited-2130937

PATIENT
  Sex: Male

DRUGS (5)
  1. LORATADINE [Suspect]
     Active Substance: LORATADINE
     Indication: Anaphylactic reaction
     Route: 048
  2. DIPHENHYDRAMINE [Suspect]
     Active Substance: DIPHENHYDRAMINE
     Route: 048
  3. RANITIDINE [Suspect]
     Active Substance: RANITIDINE
     Route: 048
  4. PEGVALIASE [Concomitant]
     Active Substance: PEGVALIASE
     Route: 065
  5. EPINEPHRINE [Concomitant]
     Active Substance: EPINEPHRINE
     Route: 065

REACTIONS (2)
  - Drug ineffective [Unknown]
  - Off label use [Unknown]
